FAERS Safety Report 18599292 (Version 1)
Quarter: 2020Q4

REPORT INFORMATION
  Report Type: Spontaneous
  Country: DE (occurrence: DE)
  Receive Date: 20201210
  Receipt Date: 20201210
  Transmission Date: 20210114
  Serious: Yes (Other)
  Sender: FDA-Public Use
  Company Number: DE-AMGEN-DEUSP2020198562

PATIENT
  Age: 67 Year
  Sex: Female
  Weight: 69 kg

DRUGS (1)
  1. MVASI [Suspect]
     Active Substance: BEVACIZUMAB-AWWB
     Indication: RECTAL CANCER
     Dosage: 5 MILLIGRAM/KILOGRAM, Q2WK
     Route: 042
     Dates: start: 20191215

REACTIONS (1)
  - Polyneuropathy [Unknown]

NARRATIVE: CASE EVENT DATE: 20201201
